FAERS Safety Report 8521985 (Version 2)
Quarter: 2013Q1

REPORT INFORMATION
  Report Type: Spontaneous
  Country: GB (occurrence: GB)
  Receive Date: 20120419
  Receipt Date: 20130315
  Transmission Date: 20140127
  Serious: Yes (Death, Life-Threatening, Hospitalization)
  Sender: FDA-Public Use
  Company Number: GB-UCBSA-055332

PATIENT
  Sex: Female
  Weight: 64 kg

DRUGS (7)
  1. CIMZIA [Suspect]
     Indication: RHEUMATOID ARTHRITIS
     Dosage: UNKNOWN DOSE
     Dates: start: 201102, end: 201108
  2. OMEPRAZOLE [Concomitant]
     Dosage: DOSE: 20 MG DAILY
  3. ATENOLOL [Concomitant]
     Dosage: DOSE: 50 MG DAILY
  4. ASPIRIN [Concomitant]
     Dosage: DOSE: 75 MG DAILY
  5. ATORVASTATIN [Concomitant]
     Dosage: DOSE: 20 MG NOCTE
  6. FRUSEMIDE [Concomitant]
     Dosage: UNKNOWN DOSE
  7. FRUSEMIDE [Concomitant]
     Dosage: DOSE: 80
     Dates: start: 201108

REACTIONS (4)
  - Cardiac arrest [Fatal]
  - Cardiac failure congestive [Fatal]
  - Skin ulcer [Unknown]
  - Rheumatoid arthritis [Unknown]
